FAERS Safety Report 17225173 (Version 3)
Quarter: 2023Q1

REPORT INFORMATION
  Report Type: Spontaneous
  Country: SE (occurrence: SE)
  Receive Date: 20200102
  Receipt Date: 20230215
  Transmission Date: 20230417
  Serious: Yes (Hospitalization)
  Sender: FDA-Public Use
  Company Number: None

PATIENT
  Sex: Female

DRUGS (11)
  1. PROMETHAZINE HYDROCHLORIDE\THIOUREA [Suspect]
     Active Substance: PROMETHAZINE HYDROCHLORIDE\THIOUREA
     Indication: Product used for unknown indication
     Dosage: 900 MG, TOTAL 36 LERGIGAN A 25 MG
     Route: 048
     Dates: start: 20181014, end: 20181014
  2. OLANZAPINE [Suspect]
     Active Substance: OLANZAPINE
     Indication: Product used for unknown indication
     Dosage: 5 MILLIGRAM, TOTAL (5 MG. TOTAL (1 PC A 5 MG))
     Route: 048
     Dates: start: 20181014, end: 20181014
  3. SERTRALINE [Suspect]
     Active Substance: SERTRALINE HYDROCHLORIDE
     Indication: Product used for unknown indication
     Dosage: 1 DOSAGE FORM, TOTAL, 1 OT, (UNCLEAR AMOUNT)
     Route: 048
     Dates: start: 20181014, end: 20181014
  4. ARIPIPRAZOLE [Suspect]
     Active Substance: ARIPIPRAZOLE
     Indication: Product used for unknown indication
     Dosage: 1 DOSAGE FORM, TOTAL, 1 OT, (UNCLEAR AMOUNT)
     Route: 048
     Dates: start: 20181014, end: 20181014
  5. ZUCLOPENTHIXOL [Suspect]
     Active Substance: ZUCLOPENTHIXOL
     Indication: Product used for unknown indication
     Dosage: 1 DOSAGE FORM, TOTAL 1 OT, (UNKNOWN AMOUNT)
     Route: 048
     Dates: start: 20181014, end: 20181014
  6. TRIMEPRAZINE [Suspect]
     Active Substance: TRIMEPRAZINE
     Indication: Product used for unknown indication
     Dosage: 1 DOSAGE FORM, TOTAL, 1 OT, (UNCLEAR AMOUNT)
     Route: 048
     Dates: start: 20181014, end: 20181014
  7. TRIHEXYPHENIDYL HYDROCHLORIDE [Suspect]
     Active Substance: TRIHEXYPHENIDYL HYDROCHLORIDE
     Indication: Product used for unknown indication
     Dosage: 1 DOSAGE FORM, TOTAL 1 OT, (UNKNOWN AMOUNT)
     Route: 048
     Dates: start: 20181014, end: 20181014
  8. DIAZEPAM [Suspect]
     Active Substance: DIAZEPAM
     Indication: Product used for unknown indication
     Dosage: 80 MG, TOTAL (4 STESOLID A 20 MG)
     Route: 048
     Dates: start: 20181014, end: 20181014
  9. NALTREXONE [Suspect]
     Active Substance: NALTREXONE
     Indication: Product used for unknown indication
     Dosage: 1 DOSAGE FORM, TOTAL 1 OT, (UNKNOWN AMOUNT)
     Route: 048
     Dates: start: 20181014, end: 20181014
  10. MELATONIN [Suspect]
     Active Substance: MELATONIN
     Indication: Product used for unknown indication
     Dosage: 1 DOSAGE FORM, TOTAL, 1 OT, (UNCLEAR AMOUNT)
     Route: 048
     Dates: start: 20181014, end: 20181014
  11. LAMOTRIGINE [Suspect]
     Active Substance: LAMOTRIGINE
     Indication: Product used for unknown indication
     Dosage: 1 DOSAGE FORM, TOTAL, 1 OT, (UNCLEAR AMOUNT)
     Route: 048
     Dates: start: 20181014, end: 20181014

REACTIONS (4)
  - Intentional self-injury [Unknown]
  - Depressed level of consciousness [Unknown]
  - Fatigue [Unknown]
  - Intentional overdose [Unknown]

NARRATIVE: CASE EVENT DATE: 20181001
